FAERS Safety Report 6832570-8 (Version None)
Quarter: 2010Q3

REPORT INFORMATION
  Report Type: 
  Country: None (occurrence: None)
  Receive Date: 20100712
  Receipt Date: 20100628
  Transmission Date: 20110219
  Serious: Yes (Hospitalization)
  Sender: FDA-Public Use
  Company Number: US-ELI_LILLY_AND_COMPANY-US201007001525

PATIENT
  Sex: Male
  Weight: 86.5 kg

DRUGS (17)
  1. GEMCITABINE HYDROCHLORIDE [Suspect]
     Indication: NON-SMALL CELL LUNG CANCER METASTATIC
     Dosage: 1612.5 MG, OTHER
     Route: 042
     Dates: start: 20100521
  2. CETUXIMAB [Suspect]
     Indication: NON-SMALL CELL LUNG CANCER METASTATIC
     Dosage: 537.5 MG, WEEKLY (1/W)
     Route: 042
     Dates: start: 20100521
  3. CISPLATIN [Suspect]
     Indication: NON-SMALL CELL LUNG CANCER METASTATIC
     Dosage: 120.94 MG, OTHER
     Route: 042
     Dates: start: 20100524
  4. K-DUR [Concomitant]
     Dosage: 20 MEQ, DAILY (1/D)
  5. LASIX [Concomitant]
     Dosage: 20 MG, 2/D
  6. OXYCONTIN [Concomitant]
     Dosage: 5 MG, AS NEEDED
  7. ATIVAN [Concomitant]
     Dosage: 0.5 MG, AS NEEDED
  8. COLACE [Concomitant]
     Dosage: 100 MG, AS NEEDED
  9. MIRALAX [Concomitant]
     Dosage: 17 G, 2/D
  10. ZOFRAN [Concomitant]
     Dosage: 8 MG, AS NEEDED
  11. COMPAZINE [Concomitant]
     Dosage: 10 MG, AS NEEDED
  12. LIPITOR [Concomitant]
     Indication: HYPERLIPIDAEMIA
     Dosage: 80 MG, DAILY (1/D)
  13. ZETIA [Concomitant]
     Indication: HYPERLIPIDAEMIA
     Dosage: 10 MG, DAILY (1/D)
  14. VICODIN [Concomitant]
     Dosage: 2 D/F, AS NEEDED
  15. ORAMORPH SR [Concomitant]
     Dosage: 100 MG, 3/D
  16. AMBIEN [Concomitant]
     Dosage: 10 MG, EACH EVENING
  17. LOVENOX [Concomitant]
     Dosage: 90 MG, 2/D
     Route: 058

REACTIONS (1)
  - PNEUMONIA [None]
